FAERS Safety Report 10458419 (Version 1)
Quarter: 2014Q3

REPORT INFORMATION
  Report Type: Spontaneous
  Country: US (occurrence: None)
  Receive Date: 20140916
  Receipt Date: 20140916
  Transmission Date: 20150326
  Serious: Yes (Death)
  Sender: FDA-Public Use
  Company Number: None

PATIENT
  Age: 58 Year
  Sex: Female

DRUGS (2)
  1. CAPECITABINE 500MG TEVA PHARMACEUTICALS [Suspect]
     Active Substance: CAPECITABINE
     Indication: BRAIN NEOPLASM MALIGNANT
     Dosage: 1000MG  BID X 14D Q 28 DAYS  PO
     Route: 048
     Dates: start: 20140731, end: 20140912
  2. TEMOZOLOMIDE 140MG TEVA [Suspect]
     Active Substance: TEMOZOLOMIDE
     Indication: BRAIN NEOPLASM MALIGNANT
     Dosage: 280MG  QD X 5D Q 28 DAYS  PO
     Route: 048
     Dates: start: 20140731, end: 20140912

REACTIONS (1)
  - Disease progression [None]

NARRATIVE: CASE EVENT DATE: 20140912
